FAERS Safety Report 10027659 (Version 2)
Quarter: 2014Q2

REPORT INFORMATION
  Report Type: Spontaneous
  Country: US (occurrence: US)
  Receive Date: 20140321
  Receipt Date: 20140408
  Transmission Date: 20141212
  Serious: Yes (Hospitalization)
  Sender: FDA-Public Use
  Company Number: US-009507513-1403USA008437

PATIENT
  Sex: Female

DRUGS (12)
  1. DULERA [Suspect]
     Indication: BRONCHITIS
     Dosage: ONE INHALATION/TWICE A DAY
     Route: 055
     Dates: start: 201209, end: 20140321
  2. DULERA [Suspect]
     Indication: CHRONIC OBSTRUCTIVE PULMONARY DISEASE
  3. DULERA [Suspect]
     Indication: ASTHMA
  4. PLAVIX [Concomitant]
  5. METOPROLOL [Concomitant]
  6. CRESTOR [Concomitant]
  7. ISOBID [Concomitant]
  8. RANEXA [Concomitant]
  9. NIASPAN [Concomitant]
  10. LISINOPRIL [Concomitant]
     Route: 048
  11. ASPIRIN [Concomitant]
  12. OMEGA-3 MARINE TRIGLYCERIDES [Concomitant]

REACTIONS (3)
  - Chronic obstructive pulmonary disease [Unknown]
  - Dyspnoea [Unknown]
  - Product quality issue [Unknown]
